FAERS Safety Report 9225254 (Version 1)
Quarter: 2013Q2

REPORT INFORMATION
  Report Type: Spontaneous
  Country: US (occurrence: None)
  Receive Date: 20130410
  Receipt Date: 20130410
  Transmission Date: 20140414
  Serious: Yes (Hospitalization)
  Sender: FDA-Public Use
  Company Number: None

PATIENT
  Age: 24 Year
  Sex: Male
  Weight: 79.8 kg

DRUGS (1)
  1. VALPROIC ACID [Suspect]
     Indication: CONVULSION
     Dosage: 1000 MG BID PO
     Route: 048

REACTIONS (4)
  - Hyperammonaemia [None]
  - Encephalopathy [None]
  - Respiratory failure [None]
  - Mental status changes [None]
